FAERS Safety Report 7403658-8 (Version None)
Quarter: 2011Q2

REPORT INFORMATION
  Report Type: 
  Country: None (occurrence: None)
  Receive Date: 20110401
  Receipt Date: 20110318
  Transmission Date: 20111010
  Serious: Yes (Life-Threatening, Hospitalization, Other)
  Sender: FDA-Public Use
  Company Number: 2011MA002929

PATIENT
  Age: 27 Year
  Sex: Male

DRUGS (2)
  1. PROMETHY SYRUP PLAIN (PROMETHAZINE HCL SYRUP, USP, 6.25 MG./5ML) (ALPH [Suspect]
     Indication: INSOMNIA
  2. PROMETHAZINE [Suspect]
     Indication: INSOMNIA

REACTIONS (2)
  - CONVULSION [None]
  - RESPIRATORY ARREST [None]
